FAERS Safety Report 12492633 (Version 1)
Quarter: 2016Q2

REPORT INFORMATION
  Report Type: Spontaneous
  Country: US (occurrence: None)
  Receive Date: 20160622
  Receipt Date: 20160622
  Transmission Date: 20160815
  Serious: Yes (Hospitalization)
  Sender: FDA-Public Use
  Company Number: None

PATIENT
  Age: 24 Year
  Sex: Male

DRUGS (11)
  1. VITAMAX [Concomitant]
  2. MVI [Concomitant]
     Active Substance: VITAMINS
  3. LEVALBUTEROL 0.63 MYLAN [Suspect]
     Active Substance: LEVALBUTEROL
     Indication: CYSTIC FIBROSIS
     Dosage: 0.63 Q6-8 INHALED
     Route: 055
     Dates: start: 20150404, end: 20160301
  4. DOXEPIN [Concomitant]
     Active Substance: DOXEPIN
  5. TRAZODONE [Concomitant]
     Active Substance: TRAZODONE HYDROCHLORIDE
  6. AZITHROMYCIN ANHYDROUS. [Concomitant]
     Active Substance: AZITHROMYCIN ANHYDROUS
  7. ALPRAZOLAM. [Concomitant]
     Active Substance: ALPRAZOLAM
  8. NORTRIPTYLINE [Concomitant]
     Active Substance: NORTRIPTYLINE
  9. CREON [Concomitant]
     Active Substance: PANCRELIPASE AMYLASE\PANCRELIPASE LIPASE\PANCRELIPASE PROTEASE
  10. PANTOPRAZOLE [Concomitant]
     Active Substance: PANTOPRAZOLE SODIUM
  11. SODIUM CHLORIDE. [Concomitant]
     Active Substance: SODIUM CHLORIDE

REACTIONS (3)
  - Drug effect increased [None]
  - Drug intolerance [None]
  - Tachycardia [None]
